APPROVED DRUG PRODUCT: LO/OVRAL-28
Active Ingredient: ETHINYL ESTRADIOL; NORGESTREL
Strength: 0.03MG;0.3MG **Federal Register determination that product was not discontinued or withdrawn for safety or effectiveness reasons**
Dosage Form/Route: TABLET;ORAL-28
Application: N017802 | Product #001
Applicant: WYETH PHARMACEUTICALS LLC
Approved: Approved Prior to Jan 1, 1982 | RLD: Yes | RS: No | Type: DISCN